FAERS Safety Report 13569488 (Version 2)
Quarter: 2017Q4

REPORT INFORMATION
  Report Type: Spontaneous
  Country: FR (occurrence: FR)
  Receive Date: 20170522
  Receipt Date: 20171109
  Transmission Date: 20180320
  Serious: Yes (Other)
  Sender: FDA-Public Use
  Company Number: FR-PFIZER INC-2017216117

PATIENT
  Age: 82 Year
  Sex: Female

DRUGS (2)
  1. FASLODEX [Suspect]
     Active Substance: FULVESTRANT
     Indication: BREAST CANCER
     Dosage: 500 MG, CYCLIC (ON D1, D15, D28) THEN 1X/MONTH
     Route: 030
     Dates: start: 20161029
  2. IBRANCE [Suspect]
     Active Substance: PALBOCICLIB
     Indication: BREAST CANCER
     Dosage: 75 MG, CYCLIC (21 DAYS ON 28 DAYS)
     Route: 048
     Dates: start: 20161029, end: 20170421

REACTIONS (3)
  - Balance disorder [Unknown]
  - Deafness neurosensory [Not Recovered/Not Resolved]
  - Dysgeusia [Recovering/Resolving]

NARRATIVE: CASE EVENT DATE: 201612
